FAERS Safety Report 6069607-2 (Version None)
Quarter: 2009Q1

REPORT INFORMATION
  Report Type: 
  Country: None (occurrence: None)
  Receive Date: 20090209
  Receipt Date: 20090130
  Transmission Date: 20090719
  Serious: Yes (Hospitalization)
  Sender: FDA-Public Use
  Company Number: RO-RANBAXY-2009RR-21403

PATIENT
  Age: 75 Year
  Sex: Female

DRUGS (5)
  1. DIUREX 50 CAPSULE [Suspect]
     Dosage: UNK
     Dates: start: 20080818
  2. OFLOXACIN [Suspect]
     Indication: INTERSTITIAL LUNG DISEASE
     Dosage: UNK
  3. FUROSEMIDE [Concomitant]
     Indication: HYPERTENSION
     Dosage: 20 IU, UNK
     Route: 042
     Dates: start: 20090116, end: 20090117
  4. DEXTROSE 5% [Concomitant]
     Indication: HYPERKALAEMIA
     Dosage: 250 IU, BID
     Route: 042
     Dates: start: 20090116, end: 20090117
  5. INSULIN [Concomitant]
     Indication: HYPERKALAEMIA
     Dosage: 8 IU, UNK
     Route: 042
     Dates: start: 20090116, end: 20090120

REACTIONS (2)
  - HYPERKALAEMIA [None]
  - HYPERSENSITIVITY [None]
